FAERS Safety Report 6036522-X (Version None)
Quarter: 2009Q1

REPORT INFORMATION
  Report Type: 
  Country: None (occurrence: None)
  Receive Date: 20090114
  Receipt Date: 20090109
  Transmission Date: 20090719
  Serious: Yes (Life-Threatening)
  Sender: FDA-Public Use
  Company Number: ZA-ASTRAZENECA-2009AC00331

PATIENT
  Age: 6 Day
  Sex: Female

DRUGS (10)
  1. MEROPENEM [Suspect]
  2. PENICILLIN G [Concomitant]
  3. GENTAMICIN [Concomitant]
  4. VANCOMYCIN HYDROCHLORIDE [Concomitant]
  5. AMINOPHYLLINE [Concomitant]
  6. VITAMIN D [Concomitant]
  7. CAFFEINE [Concomitant]
  8. MULTIVITAMIN DROPS [Concomitant]
  9. PHOSPHATE MIXTURE [Concomitant]
  10. TPN [Concomitant]

REACTIONS (1)
  - ANAPHYLACTIC REACTION [None]
